FAERS Safety Report 18406101 (Version 2)
Quarter: 2020Q4

REPORT INFORMATION
  Report Type: Spontaneous
  Country: US (occurrence: US)
  Receive Date: 20201020
  Receipt Date: 20201102
  Transmission Date: 20210114
  Serious: Yes (Death, Other)
  Sender: FDA-Public Use
  Company Number: US-GILEAD-2020-0500006

PATIENT
  Age: 80 Year
  Sex: Female
  Weight: 123.3 kg

DRUGS (35)
  1. DEXAMETHASONE. [Concomitant]
     Active Substance: DEXAMETHASONE
     Dosage: 6 MG
     Route: 042
     Dates: start: 20201006, end: 20201009
  2. OXYGEN. [Concomitant]
     Active Substance: OXYGEN
  3. ALBUTEROL [SALBUTAMOL] [Concomitant]
     Active Substance: ALBUTEROL
     Indication: ASTHMA
     Dosage: UNK
     Route: 055
     Dates: start: 20201005, end: 20201005
  4. FUROSEMIDE. [Concomitant]
     Active Substance: FUROSEMIDE
     Dosage: 20 MG
     Route: 042
     Dates: start: 20201006, end: 20201009
  5. METOPROLOL. [Concomitant]
     Active Substance: METOPROLOL
     Dosage: 25 MG
     Route: 048
     Dates: start: 20201005, end: 20201005
  6. ONDASETRON [ONDANSETRON] [Concomitant]
     Indication: NAUSEA
  7. ONDASETRON [ONDANSETRON] [Concomitant]
     Indication: VOMITING
  8. REMDESIVIR. [Suspect]
     Active Substance: REMDESIVIR
     Dosage: 100 MG, QD
     Route: 042
     Dates: start: 20201007, end: 20201009
  9. CEFTRIAXONE. [Concomitant]
     Active Substance: CEFTRIAXONE
     Dosage: 1 G
     Route: 042
     Dates: start: 20201005, end: 20201006
  10. LORAZEPAM. [Concomitant]
     Active Substance: LORAZEPAM
     Indication: ANXIETY
     Dosage: 0.5 MG
     Route: 042
     Dates: start: 20201010, end: 20201010
  11. METOPROLOL. [Concomitant]
     Active Substance: METOPROLOL
     Dosage: 50 MG
     Route: 048
     Dates: start: 20201006, end: 20201008
  12. APIXABAN [Concomitant]
     Active Substance: APIXABAN
     Dosage: 5 MG
     Route: 048
     Dates: start: 20201005, end: 20201008
  13. FLUOCINONIDE. [Concomitant]
     Active Substance: FLUOCINONIDE
     Dosage: 15 MG
     Route: 061
     Dates: start: 20201007, end: 20201009
  14. LORAZEPAM. [Concomitant]
     Active Substance: LORAZEPAM
     Dosage: 1 MG
     Route: 048
     Dates: start: 20201006, end: 20201006
  15. METHYLPREDNISOLONE. [Concomitant]
     Active Substance: METHYLPREDNISOLONE
     Indication: ASTHMA
     Dosage: 125 MG
     Route: 042
     Dates: start: 20201005, end: 20201005
  16. MORPHINE [Concomitant]
     Active Substance: MORPHINE
     Dosage: 15 MG
     Route: 042
     Dates: start: 20201009, end: 20201009
  17. MORPHINE [Concomitant]
     Active Substance: MORPHINE
     Dosage: 2 MG
     Route: 042
     Dates: start: 20201009, end: 20201010
  18. SACCHAROMYCES BOULARDII LYOPHYLIZED [Concomitant]
     Dosage: 250 MG
     Route: 048
     Dates: start: 20201005, end: 20201008
  19. VANCOMYCIN [Concomitant]
     Active Substance: VANCOMYCIN
     Dosage: 1 G
     Route: 042
     Dates: start: 20201005, end: 20201005
  20. REMDESIVIR. [Suspect]
     Active Substance: REMDESIVIR
     Indication: COVID-19
     Dosage: 200 MG, ONCE
     Route: 042
     Dates: start: 20201006, end: 20201006
  21. AZITHROMYCIN ANHYDROUS. [Concomitant]
     Active Substance: AZITHROMYCIN ANHYDROUS
     Dosage: 500 MG
     Route: 048
     Dates: start: 20201005, end: 20201006
  22. DIPHENHYDRAMINE. [Concomitant]
     Active Substance: DIPHENHYDRAMINE
     Indication: PRURITUS
     Dosage: 25 MG
     Route: 048
     Dates: start: 20201005, end: 20201005
  23. MORPHINE [Concomitant]
     Active Substance: MORPHINE
     Indication: PAIN
     Dosage: 0.5 MG
     Route: 042
     Dates: start: 20201007, end: 20201007
  24. PIPERACILLIN AND TAZOBACTAM [Concomitant]
     Active Substance: PIPERACILLIN SODIUM\TAZOBACTAM SODIUM
     Dosage: 3.375 MG
     Route: 042
     Dates: start: 20201005, end: 20201005
  25. SCOPOLAMINE [HYOSCINE] [Concomitant]
     Active Substance: SCOPOLAMINE
     Dosage: 1.5 MG
     Route: 061
     Dates: start: 20201009, end: 20201009
  26. ELIQUIS [Concomitant]
     Active Substance: APIXABAN
     Indication: ATRIAL FIBRILLATION
  27. ACETAMINOPHEN. [Concomitant]
     Active Substance: ACETAMINOPHEN
     Indication: PAIN
     Dosage: 650 MG
     Route: 048
     Dates: start: 20201005, end: 20201007
  28. FERROUS SULFATE. [Concomitant]
     Active Substance: FERROUS SULFATE
     Indication: PROPHYLAXIS
     Dosage: 325 MCG
     Route: 048
     Dates: start: 20201005, end: 20201008
  29. MELATONIN [Concomitant]
     Active Substance: MELATONIN
     Indication: INSOMNIA
     Dosage: 6 MG
     Route: 048
     Dates: start: 20201006, end: 20201006
  30. MIRTAZAPINE. [Concomitant]
     Active Substance: MIRTAZAPINE
     Dosage: 7.5 MG
     Route: 048
     Dates: start: 20201006, end: 20201008
  31. PANTOPRAZOLE [Concomitant]
     Active Substance: PANTOPRAZOLE
     Dosage: 40 MG
     Route: 048
     Dates: start: 20201005, end: 20201008
  32. LASIX [Concomitant]
     Active Substance: FUROSEMIDE
  33. ASCORBIC ACID. [Concomitant]
     Active Substance: ASCORBIC ACID
     Indication: PROPHYLAXIS
     Dosage: 500 MG
     Route: 048
     Dates: start: 20201005, end: 20201008
  34. DIGOXIN. [Concomitant]
     Active Substance: DIGOXIN
     Dosage: 125 MCG
     Route: 048
     Dates: start: 20201005, end: 20201008
  35. TRAMADOL. [Concomitant]
     Active Substance: TRAMADOL
     Indication: PAIN
     Dosage: 50 MG
     Route: 048
     Dates: start: 20201007, end: 20201008

REACTIONS (2)
  - COVID-19 [Fatal]
  - Death [Fatal]

NARRATIVE: CASE EVENT DATE: 202010
